FAERS Safety Report 14457707 (Version 1)
Quarter: 2018Q1

REPORT INFORMATION
  Report Type: Spontaneous
  Country: US (occurrence: US)
  Receive Date: 20180129
  Receipt Date: 20180129
  Transmission Date: 20180509
  Serious: Yes (Death)
  Sender: FDA-Public Use
  Company Number: None

PATIENT
  Age: 79 Year
  Sex: Female
  Weight: 66 kg

DRUGS (19)
  1. DILTIAZEM. [Concomitant]
     Active Substance: DILTIAZEM
  2. LOVENOX [Suspect]
     Active Substance: ENOXAPARIN SODIUM
     Indication: NEOPLASM MALIGNANT
     Route: 058
     Dates: start: 20180108
  3. IPRATROPIUM-ALBUTEROL NEBULIZER [Concomitant]
  4. LOVENOX [Suspect]
     Active Substance: ENOXAPARIN SODIUM
     Indication: ATRIAL FIBRILLATION
     Route: 058
     Dates: start: 20180108
  5. SUCRALFATE. [Concomitant]
     Active Substance: SUCRALFATE
  6. UMECLIDINIUM-VILANTEROL [Concomitant]
  7. CHOLECALCIFEROL [Concomitant]
     Active Substance: CHOLECALCIFEROL
  8. HYDROCODONE-ACETAMINOPHEN [Concomitant]
     Active Substance: ACETAMINOPHEN\HYDROCODONE
  9. LISINOPRIL-HCTZ [Concomitant]
     Active Substance: HYDROCHLOROTHIAZIDE\LISINOPRIL
  10. FLECAINIDE [Concomitant]
     Active Substance: FLECAINIDE
  11. LETROZOLE. [Concomitant]
     Active Substance: LETROZOLE
  12. PALBOCICLIB [Concomitant]
     Active Substance: PALBOCICLIB
  13. ALPRAZOLAM. [Concomitant]
     Active Substance: ALPRAZOLAM
  14. ALBUTEROL INHALER [Concomitant]
     Active Substance: ALBUTEROL
  15. CYANCOBALAMIN [Concomitant]
     Active Substance: CYANOCOBALAMIN
  16. COLACE [Concomitant]
     Active Substance: DOCUSATE SODIUM
  17. WARFARIN [Suspect]
     Active Substance: WARFARIN
     Indication: ATRIAL FIBRILLATION
     Route: 048
     Dates: start: 20160201
  18. PULMICORT TURBUHALER [Concomitant]
     Active Substance: BUDESONIDE
  19. ONDANSETRON [Concomitant]
     Active Substance: ONDANSETRON

REACTIONS (3)
  - Haemorrhage intracranial [None]
  - Hydrocephalus [None]
  - Intraventricular haemorrhage [None]

NARRATIVE: CASE EVENT DATE: 20180126
